FAERS Safety Report 4761055-8 (Version None)
Quarter: 2005Q3

REPORT INFORMATION
  Report Type: 
  Country: None (occurrence: None)
  Receive Date: 20050901
  Receipt Date: 20050819
  Transmission Date: 20060218
  Serious: Yes (Other)
  Sender: FDA-Public Use
  Company Number: CA-2005-006523

PATIENT
  Age: 40 Year
  Sex: Female

DRUGS (5)
  1. MIRENA [Suspect]
     Indication: GENITAL HAEMORRHAGE
     Dosage: 20 ?G/DAY, CONT, INTRA-UTERINE
     Route: 015
     Dates: start: 20040801
  2. BETADINE ^PURDUE^ (POVIDONE-IODINE) [Concomitant]
  3. VENTOLIN [Concomitant]
  4. PULMICORT [Concomitant]
  5. BEXTRA [Concomitant]

REACTIONS (4)
  - DEPRESSION [None]
  - DYSMENORRHOEA [None]
  - METRORRHAGIA [None]
  - SUICIDAL IDEATION [None]
